FAERS Safety Report 7919315-5 (Version None)
Quarter: 2011Q4

REPORT INFORMATION
  Report Type: 
  Country: None (occurrence: None)
  Receive Date: 20111116
  Receipt Date: 20111116
  Transmission Date: 20120403
  Serious: Yes (Hospitalization)
  Sender: FDA-Public Use
  Company Number: None

PATIENT
  Sex: Female
  Weight: 75.4 kg

DRUGS (3)
  1. IFOSFAMIDE [Suspect]
     Dosage: 8.88 MG
  2. NEULASTA [Suspect]
     Dosage: 6 MG
  3. TAXOL [Suspect]
     Dosage: 324 MG

REACTIONS (1)
  - LYMPHOCYTE COUNT DECREASED [None]
